FAERS Safety Report 17909175 (Version 1)
Quarter: 2020Q2

REPORT INFORMATION
  Report Type: Spontaneous
  Country: IT (occurrence: IT)
  Receive Date: 20200617
  Receipt Date: 20200617
  Transmission Date: 20200714
  Serious: Yes (Other)
  Sender: FDA-Public Use
  Company Number: PHHY2013IT019172

PATIENT
  Age: 20 Year
  Sex: Female

DRUGS (7)
  1. CICLOSPORIN [Suspect]
     Active Substance: CYCLOSPORINE
     Indication: BEHCET^S SYNDROME
     Dosage: 4-5 MG/KG, DAILY
     Route: 065
  2. SULFASALAZINE. [Suspect]
     Active Substance: SULFASALAZINE
     Indication: BEHCET^S SYNDROME
     Dosage: 40 MG/KG, DAILY
     Route: 065
  3. ETANERCEPT [Suspect]
     Active Substance: ETANERCEPT
     Indication: BEHCET^S SYNDROME
     Dosage: 50 MG, WEEKLY
     Route: 065
  4. INFLIXIMAB [Suspect]
     Active Substance: INFLIXIMAB
     Indication: BEHCET^S SYNDROME
     Dosage: UNK (5 MG/KG EVERY 6 WEEKS)
     Route: 065
  5. LEFLUNOMIDE. [Suspect]
     Active Substance: LEFLUNOMIDE
     Indication: BEHCET^S SYNDROME
     Dosage: 20 MG, DAILY
     Route: 065
  6. METHOTREXATE. [Suspect]
     Active Substance: METHOTREXATE
     Indication: BEHCET^S SYNDROME
     Dosage: 15 MG/M2, WEEKLY
     Route: 065
  7. AZATHIOPRINE. [Suspect]
     Active Substance: AZATHIOPRINE
     Indication: BEHCET^S SYNDROME
     Dosage: 3-4 MG/KG, DAILY
     Route: 065

REACTIONS (5)
  - Urinary tract infection [Unknown]
  - Off label use [Unknown]
  - Product use in unapproved indication [Unknown]
  - Treatment failure [Unknown]
  - Endocarditis bacterial [Unknown]
